FAERS Safety Report 12667902 (Version 2)
Quarter: 2016Q3

REPORT INFORMATION
  Report Type: Spontaneous
  Country: IL (occurrence: IL)
  Receive Date: 20160819
  Receipt Date: 20160901
  Transmission Date: 20161109
  Serious: Yes (Hospitalization, Other)
  Sender: FDA-Public Use
  Company Number: IL-PFIZER INC-3089788

PATIENT
  Age: 37 Year
  Sex: Female

DRUGS (3)
  1. FLUOROURACIL. [Concomitant]
     Active Substance: FLUOROURACIL
     Indication: RECTAL CANCER
     Dosage: 12 COURSE REGIMEN OF FOLFOX, FREQ: CYCLICAL
  2. FOLINIC ACID [Concomitant]
     Active Substance: LEUCOVORIN
     Indication: RECTAL CANCER
     Dosage: 12 COURSE REGIMEN OF FOLFOX, FREQ: CYCLICAL
  3. OXALIPLATIN. [Suspect]
     Active Substance: OXALIPLATIN
     Indication: RECTAL CANCER
     Dosage: 12 COURSE REGIMEN OF FOLFOX, FREQ: CYCLICAL

REACTIONS (1)
  - Focal nodular hyperplasia [Unknown]
